FAERS Safety Report 6070714-9 (Version None)
Quarter: 2009Q1

REPORT INFORMATION
  Report Type: 
  Country: None (occurrence: None)
  Receive Date: 20090209
  Receipt Date: 20090128
  Transmission Date: 20090719
  Serious: Yes (Hospitalization)
  Sender: FDA-Public Use
  Company Number: DE-ROCHE-600730

PATIENT
  Sex: Female
  Weight: 76.7 kg

DRUGS (14)
  1. VALGANCICLOVIR HCL [Suspect]
     Dosage: ROUTE AND FORM AS PER PROTOCOL
     Route: 048
  2. ACETYLSALICYLSAURE [Concomitant]
     Dates: start: 20080814
  3. AMLODIPINE [Concomitant]
     Dates: start: 20071212
  4. BISOPROLOL FUMARATE [Concomitant]
     Dates: start: 20080420
  5. VIGANTOLETTEN [Concomitant]
     Dosage: DOSE: 500 IE
     Dates: start: 20080428
  6. FLUVASTATIN [Concomitant]
     Dosage: DRUG : LOCOL RET.
     Dates: start: 20080415
  7. CELLCEPT [Concomitant]
     Dates: start: 20080428
  8. PANTOZOL [Concomitant]
     Dosage: TDD / UNIT : AS NEEDED
     Dates: start: 20080814
  9. PREDNISONE [Concomitant]
     Dates: start: 20080408
  10. RAMIPRIL [Concomitant]
     Dates: start: 20071212
  11. PROGRAF [Concomitant]
     Dates: start: 20080408, end: 20081209
  12. RAPAMUNE [Concomitant]
  13. SIROLIMUS [Concomitant]
     Dates: start: 20090128
  14. LEFLUNOMIDE [Concomitant]
     Dates: start: 20081230

REACTIONS (2)
  - BLOOD CREATININE INCREASED [None]
  - HUMAN POLYOMAVIRUS INFECTION [None]
